FAERS Safety Report 20648787 (Version 2)
Quarter: 2022Q2

REPORT INFORMATION
  Report Type: Report from Study
  Country: GB (occurrence: GB)
  Receive Date: 20220329
  Receipt Date: 20220401
  Transmission Date: 20220721
  Serious: Yes (Other)
  Sender: FDA-Public Use
  Company Number: GB-ROCHE-2695604

PATIENT
  Age: 56 Year
  Sex: Female

DRUGS (16)
  1. DOCETAXEL [Suspect]
     Active Substance: DOCETAXEL
     Indication: Product used for unknown indication
     Dosage: 120 MILLIGRAM, Q3W, (120 MILLIGRAM, Q3WK )
     Route: 042
     Dates: start: 20180613, end: 20180725
  2. DOCETAXEL [Suspect]
     Active Substance: DOCETAXEL
     Dosage: 148 MILLIGRAM, Q3W, (148 MILLIGRAM, Q3WK )
     Route: 042
     Dates: start: 20180502, end: 20180523
  3. EXEMESTANE [Suspect]
     Active Substance: EXEMESTANE
     Indication: Product used for unknown indication
     Dosage: 25 MILLIGRAM, QD (ONCE A DAY)
     Route: 048
     Dates: start: 201801, end: 20180419
  4. EXEMESTANE [Suspect]
     Active Substance: EXEMESTANE
     Dosage: 25 MILLIGRAM, QD (ONCE A DAY)
     Route: 048
     Dates: start: 20180921, end: 20200122
  5. TRASTUZUMAB [Suspect]
     Active Substance: TRASTUZUMAB
     Indication: Breast cancer
     Dosage: 882 MILLIGRAM, Q3W, (882 MILLIGRAM, Q3WK )
     Route: 041
     Dates: start: 20180502
  6. TRASTUZUMAB [Suspect]
     Active Substance: TRASTUZUMAB
     Dosage: 651 MILLIGRAM, Q3W, (651 MILLIGRAM, Q3WK )
     Route: 041
     Dates: start: 20180523, end: 20200122
  7. GOSERELIN [Suspect]
     Active Substance: GOSERELIN
     Indication: Product used for unknown indication
     Dosage: 3.6 MILLIGRAM, Q28D (3.6 MILLIGRAM, Q4WK )
     Route: 058
     Dates: start: 201801, end: 20180419
  8. GOSERELIN [Suspect]
     Active Substance: GOSERELIN
     Dosage: 3.6 MILLIGRAM, Q28D (3.6 MILLIGRAM, Q4WK )
     Route: 058
     Dates: start: 20180907, end: 20200122
  9. PERTUZUMAB [Suspect]
     Active Substance: PERTUZUMAB
     Indication: Breast cancer
     Dosage: 840 MILLIGRAM, Q3W, (840 MILLIGRAM, Q3WK)
     Route: 042
     Dates: start: 20180502
  10. PERTUZUMAB [Suspect]
     Active Substance: PERTUZUMAB
     Dosage: 420 MILLIGRAM, Q3W, (420 MILLIGRAM, Q3WK )
     Route: 042
     Dates: start: 20180523
  11. ADO-TRASTUZUMAB EMTANSINE [Suspect]
     Active Substance: ADO-TRASTUZUMAB EMTANSINE
     Indication: Breast cancer
     Dosage: 380 MILLIGRAM, Q3W (380 MILLIGRAM, 3 WEEK )
     Route: 042
     Dates: start: 20200129, end: 20200603
  12. ADO-TRASTUZUMAB EMTANSINE [Suspect]
     Active Substance: ADO-TRASTUZUMAB EMTANSINE
     Dosage: 320 MILLIGRAM, Q3W (320 MILLIGRAM, 3 WEEK )
     Route: 042
     Dates: start: 20200616
  13. XGEVA [Suspect]
     Active Substance: DENOSUMAB
     Indication: Product used for unknown indication
     Dosage: 120 MILLIGRAM
     Route: 058
     Dates: start: 20200513
  14. BENZYDAMINE [Concomitant]
     Active Substance: BENZYDAMINE
     Indication: Stomatitis
     Dosage: 15 MILLILITER
     Route: 048
     Dates: start: 20180510
  15. IRBESARTAN [Concomitant]
     Active Substance: IRBESARTAN
     Indication: Product used for unknown indication
     Dosage: 300 MILLIGRAM, QD (ONCE A DAY)
     Route: 048
     Dates: start: 1993
  16. MOVICOL [Concomitant]
     Active Substance: POLYETHYLENE GLYCOL 3350\POTASSIUM CHLORIDE\SODIUM BICARBONATE\SODIUM CHLORIDE
     Indication: Constipation
     Dosage: 13.8 GRAM
     Route: 065
     Dates: start: 20200501

REACTIONS (3)
  - Weight decreased [Recovered/Resolved with Sequelae]
  - Neuropathy peripheral [Recovered/Resolved with Sequelae]
  - Off label use [Unknown]

NARRATIVE: CASE EVENT DATE: 20180523
